FAERS Safety Report 8449917 (Version 3)
Quarter: 2012Q4

REPORT INFORMATION
  Report Type: 
  Country: US (occurrence: US)
  Receive Date: 20120309
  Receipt Date: 20121012
  Transmission Date: 20130627
  Serious: Yes (Other)
  Sender: FDA-Public Use
  Company Number: US-US-EMD SERONO, INC.-7115855

PATIENT
  Sex: Male
  Weight: 84 kg

DRUGS (8)
  1. EGRIFTA [Suspect]
     Indication: LIPODYSTROPHY ACQUIRED
     Route: 058
     Dates: start: 201102, end: 201105
  2. EGRIFTA [Suspect]
     Dates: start: 201111, end: 201111
  3. METFORMIN [Concomitant]
     Indication: DIABETES MELLITUS
  4. TRUVADA [Concomitant]
     Indication: LENTIVIRUS TEST POSITIVE
  5. VIRAMUNE [Concomitant]
     Indication: LENTIVIRUS TEST POSITIVE
  6. METOPROLOL [Concomitant]
     Indication: HYPERTENSION
  7. NORVASC [Concomitant]
     Indication: HYPERTENSION
  8. PRAVASTATIN [Concomitant]
     Indication: BLOOD CHOLESTEROL INCREASED

REACTIONS (1)
  - Colon cancer stage IV [Recovering/Resolving]
